FAERS Safety Report 23131474 (Version 2)
Quarter: 2023Q4

REPORT INFORMATION
  Report Type: Spontaneous
  Country: LT (occurrence: LT)
  Receive Date: 20231031
  Receipt Date: 20231101
  Transmission Date: 20240110
  Serious: Yes (Hospitalization, Other)
  Sender: FDA-Public Use
  Company Number: LT-002147023-PHHY2017LT194029

PATIENT
  Age: 35 Year
  Sex: Female

DRUGS (12)
  1. CEFAZOLIN [Suspect]
     Active Substance: CEFAZOLIN
     Indication: Amniotic cavity infection
     Dosage: UNK
     Route: 065
  2. CEFAZOLIN SODIUM [Suspect]
     Active Substance: CEFAZOLIN SODIUM
     Indication: Labour pain
     Dosage: UNK
     Route: 065
     Dates: start: 20170903
  3. DICLOFENAC [Suspect]
     Active Substance: DICLOFENAC
     Indication: Urinary tract infection
     Dosage: 100 MG, QD
     Route: 054
     Dates: start: 20070814
  4. DICLOFENAC [Suspect]
     Active Substance: DICLOFENAC
     Indication: Abdominal pain
  5. DEXAMETHASONE [Suspect]
     Active Substance: DEXAMETHASONE
     Indication: Maternal therapy to enhance foetal lung maturity
     Dosage: UNK
     Route: 065
     Dates: start: 20170816
  6. FENTANYL [Suspect]
     Active Substance: FENTANYL\FENTANYL CITRATE
     Indication: Labour pain
     Dosage: UNK
     Route: 065
     Dates: start: 20170903
  7. GENTAMICIN [Suspect]
     Active Substance: GENTAMICIN
     Indication: Amniotic cavity infection
     Dosage: UNK
     Route: 065
     Dates: start: 20170903
  8. HEPARIN [Suspect]
     Active Substance: HEPARIN SODIUM
     Indication: Thrombosis prophylaxis
     Dosage: 0.4 ML, QD
     Route: 058
     Dates: start: 20170815, end: 20170825
  9. MEROPENEM [Suspect]
     Active Substance: MEROPENEM
     Indication: Peritonitis
     Dosage: 3 G, QD (1 G, TID)
     Route: 065
     Dates: start: 20170815, end: 20170825
  10. METRONIDAZOLE [Suspect]
     Active Substance: METRONIDAZOLE
     Indication: Amniotic cavity infection
     Dosage: UNK
     Route: 065
  11. MAGNESIUM [Suspect]
     Active Substance: MAGNESIUM
     Indication: Product used for unknown indication
     Dosage: UNK
     Route: 065
  12. NITROFURANTOIN [Suspect]
     Active Substance: NITROFURANTOIN
     Indication: Urinary tract infection
     Dosage: 200 MG, QD (100MG, BID)
     Route: 065
     Dates: start: 20170814

REACTIONS (2)
  - Maternal exposure during pregnancy [Unknown]
  - Premature delivery [Unknown]
